FAERS Safety Report 6877167-9 (Version None)
Quarter: 2010Q3

REPORT INFORMATION
  Report Type: 
  Country: None (occurrence: None)
  Receive Date: 20100727
  Receipt Date: 20100727
  Transmission Date: 20110219
  Serious: Yes (Life-Threatening, Other)
  Sender: FDA-Public Use
  Company Number: None

PATIENT
  Age: 74 Year
  Sex: Male
  Weight: 108.8633 kg

DRUGS (1)
  1. VYTORIN [Suspect]
     Indication: BLOOD CHOLESTEROL INCREASED
     Dates: start: 20060207, end: 20060221

REACTIONS (4)
  - DYSPNOEA [None]
  - MUSCLE ATROPHY [None]
  - MUSCLE RUPTURE [None]
  - ROTATOR CUFF SYNDROME [None]
